FAERS Safety Report 11037880 (Version 2)
Quarter: 2015Q3

REPORT INFORMATION
  Report Type: Spontaneous
  Country: IT (occurrence: IT)
  Receive Date: 20150416
  Receipt Date: 20150910
  Transmission Date: 20151125
  Serious: Yes (Death)
  Sender: FDA-Public Use
  Company Number: IT-BAYER-2015-044917

PATIENT
  Age: 57 Year
  Sex: Male

DRUGS (8)
  1. TRIATEC [Concomitant]
     Active Substance: RAMIPRIL
     Dosage: DAILY DOSE 5 MG
     Route: 048
     Dates: start: 20140807, end: 20150123
  2. PANTOPRAZOLE [Concomitant]
     Active Substance: PANTOPRAZOLE SODIUM
     Dosage: DAILY DOSE 20 MG
     Route: 048
     Dates: start: 20140807, end: 20150123
  3. INDERAL [Concomitant]
     Active Substance: PROPRANOLOL HYDROCHLORIDE
     Dosage: DAILY DOSE 40 MG
     Route: 048
     Dates: start: 20140807, end: 20150123
  4. NEXAVAR [Suspect]
     Active Substance: SORAFENIB
     Indication: HEPATOCELLULAR CARCINOMA
     Dosage: REDUCED DOSE
     Route: 048
  5. DARUNAVIR [Concomitant]
     Active Substance: DARUNAVIR
     Dosage: DAILY DOSE 800 MG
     Route: 048
     Dates: start: 20140717, end: 20150123
  6. NORVIR [Concomitant]
     Active Substance: RITONAVIR
     Dosage: DAILY DOSE 100 MG
     Route: 048
     Dates: start: 20140717, end: 20150123
  7. NEXAVAR [Suspect]
     Active Substance: SORAFENIB
     Indication: HEPATOCELLULAR CARCINOMA
     Dosage: DAILY DOSE 600 MG
     Route: 048
     Dates: start: 20141022
  8. TRUVADA [Concomitant]
     Active Substance: EMTRICITABINE\TENOFOVIR DISOPROXIL FUMARATE
     Dosage: UNK
     Route: 048
     Dates: start: 20061211, end: 20150123

REACTIONS (1)
  - Diarrhoea [Fatal]

NARRATIVE: CASE EVENT DATE: 20141223
